FAERS Safety Report 18970313 (Version 1)
Quarter: 2021Q1

REPORT INFORMATION
  Report Type: Spontaneous
  Country: US (occurrence: US)
  Receive Date: 20210304
  Receipt Date: 20210304
  Transmission Date: 20210420
  Serious: Yes (Death, Other)
  Sender: FDA-Public Use
  Company Number: US-HIKMA PHARMACEUTICALS USA INC.-US-H14001-21-00949

PATIENT
  Age: 46 Year
  Sex: Female

DRUGS (20)
  1. EVEROLIMUS. [Concomitant]
     Active Substance: EVEROLIMUS
     Indication: INVASIVE DUCTAL BREAST CARCINOMA
     Dosage: UNKNOWN
     Route: 065
     Dates: start: 201207
  2. PACLITAXEL. [Concomitant]
     Active Substance: PACLITAXEL
     Dosage: UNKNOWN
     Route: 065
     Dates: start: 201504
  3. VINORELBINE [Concomitant]
     Active Substance: VINORELBINE TARTRATE
     Indication: INVASIVE DUCTAL BREAST CARCINOMA
     Dosage: UNKNOWN
     Route: 065
     Dates: start: 2015
  4. EXEMESTANE. [Suspect]
     Active Substance: EXEMESTANE
     Indication: INVASIVE DUCTAL BREAST CARCINOMA
     Dosage: UNKNOWN
     Route: 065
     Dates: start: 201205
  5. TRAMETINIB [Concomitant]
     Active Substance: TRAMETINIB
     Indication: INVASIVE DUCTAL BREAST CARCINOMA
     Dosage: UNKNOWN
     Route: 065
     Dates: start: 201602
  6. EVEROLIMUS. [Concomitant]
     Active Substance: EVEROLIMUS
     Dosage: UNKNOWN
     Route: 065
     Dates: start: 201508
  7. EVEROLIMUS. [Concomitant]
     Active Substance: EVEROLIMUS
     Dosage: UNKNOWN
     Route: 065
     Dates: start: 201612
  8. CRIZOTINIB [Concomitant]
     Active Substance: CRIZOTINIB
     Indication: INVASIVE DUCTAL BREAST CARCINOMA
     Dosage: UNKNOWN
     Route: 065
     Dates: start: 2015
  9. CABOZANTINIB [Concomitant]
     Active Substance: CABOZANTINIB
     Indication: INVASIVE DUCTAL BREAST CARCINOMA
     Dosage: UNKNOWN
     Route: 065
     Dates: start: 201609
  10. EXEMESTANE. [Suspect]
     Active Substance: EXEMESTANE
     Dosage: UNKNOWN
     Route: 065
     Dates: start: 201405, end: 201409
  11. EXEMESTANE. [Suspect]
     Active Substance: EXEMESTANE
     Dosage: UNKNOWN
     Route: 065
     Dates: start: 201609
  12. FULVESTRANT. [Concomitant]
     Active Substance: FULVESTRANT
     Indication: INVASIVE DUCTAL BREAST CARCINOMA
     Dosage: UNKNOWN
     Route: 065
     Dates: start: 201405
  13. EVEROLIMUS. [Concomitant]
     Active Substance: EVEROLIMUS
     Dosage: UNKNOWN
     Route: 065
     Dates: start: 201504
  14. EVEROLIMUS. [Concomitant]
     Active Substance: EVEROLIMUS
     Dosage: UNKNOWN
     Route: 065
     Dates: start: 201602
  15. CARBOPLATIN. [Concomitant]
     Active Substance: CARBOPLATIN
     Indication: INVASIVE DUCTAL BREAST CARCINOMA
     Dosage: UNKNOWN
     Route: 065
     Dates: start: 201609
  16. PACLITAXEL. [Concomitant]
     Active Substance: PACLITAXEL
     Indication: INVASIVE DUCTAL BREAST CARCINOMA
     Dosage: UNKNOWN
     Route: 065
  17. CAPECITABINE. [Concomitant]
     Active Substance: CAPECITABINE
     Indication: INVASIVE DUCTAL BREAST CARCINOMA
     Dosage: UNKNOWN
     Route: 065
     Dates: start: 201409
  18. SORAFENIB [Concomitant]
     Active Substance: SORAFENIB
     Indication: INVASIVE DUCTAL BREAST CARCINOMA
     Dosage: UNKNOWN
     Route: 065
     Dates: start: 201504
  19. CRIZOTINIB [Concomitant]
     Active Substance: CRIZOTINIB
     Dosage: UNKNOWN
     Route: 065
     Dates: start: 201607
  20. ERIBULIN [Concomitant]
     Active Substance: ERIBULIN
     Indication: INVASIVE DUCTAL BREAST CARCINOMA
     Dosage: UNKNOWN
     Route: 065
     Dates: start: 201602, end: 201609

REACTIONS (3)
  - Drug resistance [Unknown]
  - Neutropenia [Unknown]
  - Acquired gene mutation [Unknown]

NARRATIVE: CASE EVENT DATE: 201508
